FAERS Safety Report 8960132 (Version 3)
Quarter: 2013Q1

REPORT INFORMATION
  Report Type: Spontaneous
  Country: JP (occurrence: JP)
  Receive Date: 20121211
  Receipt Date: 20130115
  Transmission Date: 20140127
  Serious: Yes (Hospitalization)
  Sender: FDA-Public Use
  Company Number: JP-GLAXOSMITHKLINE-B0850967A

PATIENT
  Age: 75 None
  Sex: Female

DRUGS (8)
  1. PAXIL [Suspect]
     Indication: DEPRESSION
     Route: 048
     Dates: start: 201208
  2. PAXIL [Suspect]
     Indication: DEPRESSION
     Dosage: 40MG PER DAY
     Route: 048
     Dates: start: 201210
  3. PAXIL [Suspect]
     Indication: DEPRESSION
     Dosage: 25MG PER DAY
     Route: 048
  4. CYMBALTA [Concomitant]
     Dosage: 20MG PER DAY
     Route: 048
  5. MYSLEE [Concomitant]
     Dosage: 5MG PER DAY
     Route: 048
     Dates: start: 20121111
  6. GASMOTIN [Concomitant]
     Dosage: 1IUAX THREE TIMES PER DAY
     Route: 048
  7. NEXIUM [Concomitant]
     Dosage: 20MG PER DAY
     Route: 048
  8. CAMOSTAT MESILATE [Concomitant]
     Dosage: 100MG THREE TIMES PER DAY
     Route: 048

REACTIONS (17)
  - Loss of consciousness [Recovered/Resolved]
  - Femur fracture [Unknown]
  - Orthostatic hypotension [Recovering/Resolving]
  - Fall [Unknown]
  - Fall [Unknown]
  - Red blood cell count decreased [Unknown]
  - Haemoglobin decreased [Unknown]
  - Haematocrit decreased [Unknown]
  - Mean cell volume decreased [Unknown]
  - Mean cell haemoglobin concentration decreased [Unknown]
  - Eosinophil count decreased [Unknown]
  - Protein total decreased [Unknown]
  - Blood albumin decreased [Unknown]
  - Blood sodium decreased [Unknown]
  - Blood chloride decreased [Unknown]
  - Blood cholinesterase decreased [Unknown]
  - C-reactive protein increased [Unknown]
